FAERS Safety Report 8236921-1 (Version None)
Quarter: 2012Q1

REPORT INFORMATION
  Report Type: 
  Country: None (occurrence: None)
  Receive Date: 20120327
  Receipt Date: 20120313
  Transmission Date: 20120608
  Serious: Yes (Hospitalization)
  Sender: FDA-Public Use
  Company Number: PHHY2011US35934

PATIENT
  Sex: Female

DRUGS (3)
  1. EXJADE [Suspect]
     Indication: SICKLE CELL ANAEMIA
     Dosage: 1000 MG, QD
     Route: 048
  2. EXJADE [Suspect]
     Indication: IRON METABOLISM DISORDER
     Dosage: 1500 MG, QD
     Route: 048
  3. COUMADIN [Concomitant]

REACTIONS (6)
  - MIGRAINE [None]
  - PAIN [None]
  - FATIGUE [None]
  - SICKLE CELL ANAEMIA WITH CRISIS [None]
  - MATERNAL EXPOSURE DURING PREGNANCY [None]
  - HAEMATOCHEZIA [None]
